FAERS Safety Report 22367476 (Version 1)
Quarter: 2023Q2

REPORT INFORMATION
  Report Type: Spontaneous
  Country: US (occurrence: US)
  Receive Date: 20230525
  Receipt Date: 20230525
  Transmission Date: 20230721
  Serious: Yes (Other)
  Sender: FDA-Public Use
  Company Number: US-TORRENT-00012677

PATIENT
  Age: 56 Year
  Sex: Male

DRUGS (1)
  1. ACYCLOVIR [Suspect]
     Active Substance: ACYCLOVIR
     Indication: Product used for unknown indication
     Dosage: 800 MG IV EVERY 8 HOURS
     Route: 042

REACTIONS (1)
  - Acute kidney injury [Recovered/Resolved]
